FAERS Safety Report 4960905-X (Version None)
Quarter: 2006Q1

REPORT INFORMATION
  Report Type: 
  Country: None (occurrence: None)
  Receive Date: 20060328
  Receipt Date: 20060314
  Transmission Date: 20060701
  Serious: Yes (Hospitalization)
  Sender: FDA-Public Use
  Company Number: 2006035823

PATIENT
  Age: 25 Year
  Sex: Female

DRUGS (1)
  1. DOSTINEX [Suspect]
     Indication: HYPERPROLACTINAEMIA
     Dosage: 0.25 MG (0.25 MG, 1 IN 1 D), ORAL
     Route: 048
     Dates: start: 20000801, end: 20050710

REACTIONS (5)
  - CAESAREAN SECTION [None]
  - DRUG EXPOSURE DURING PREGNANCY [None]
  - PREGNANCY [None]
  - REFUSAL OF TREATMENT BY PATIENT [None]
  - UMBILICAL CORD ABNORMALITY [None]
